FAERS Safety Report 8976691 (Version 4)
Quarter: 2013Q2

REPORT INFORMATION
  Report Type: Spontaneous
  Country: US (occurrence: US)
  Receive Date: 20121220
  Receipt Date: 20130430
  Transmission Date: 20140414
  Serious: Yes (Death, Other)
  Sender: FDA-Public Use
  Company Number: US-MILLENNIUM PHARMACEUTICALS, INC.-2012-09102

PATIENT
  Sex: 0

DRUGS (17)
  1. VELCADE [Suspect]
     Indication: DIFFUSE LARGE B-CELL LYMPHOMA
     Dosage: 2.4 MG, CYCLIC
     Route: 058
     Dates: start: 20120611, end: 20120710
  2. RITUXAN [Suspect]
     Indication: DIFFUSE LARGE B-CELL LYMPHOMA
     Dosage: 675 MG, CYCLIC
     Route: 065
     Dates: start: 20120611, end: 20120710
  3. DEXAMETHASONE [Suspect]
     Indication: DIFFUSE LARGE B-CELL LYMPHOMA
     Dosage: 40 MG, CYCLIC
     Route: 048
     Dates: start: 20120611, end: 20120618
  4. DEXAMETHASONE [Suspect]
     Dosage: 20 MG, UNK
     Route: 065
     Dates: start: 20120626, end: 20120710
  5. DEXAMETHASONE [Suspect]
     Dosage: 4 UNK, UNK
  6. ALLOPURINOL [Concomitant]
     Indication: PRODUCT USED FOR UNKNOWN INDICATION
     Dosage: 300 MG, UNK
     Route: 048
  7. AMBIEN [Concomitant]
     Indication: PRODUCT USED FOR UNKNOWN INDICATION
     Dosage: 5 MG, UNK
     Route: 048
  8. DRONABINOL [Concomitant]
     Indication: PRODUCT USED FOR UNKNOWN INDICATION
     Dosage: 5 MG, UNK
     Route: 048
  9. FUROSEMIDE [Concomitant]
     Indication: PRODUCT USED FOR UNKNOWN INDICATION
     Dosage: 20 MG, UNK
     Route: 048
  10. KEPPRA [Concomitant]
     Indication: PRODUCT USED FOR UNKNOWN INDICATION
     Dosage: 500 MG, UNK
     Route: 048
  11. KLOR-CON [Concomitant]
     Indication: PRODUCT USED FOR UNKNOWN INDICATION
     Dosage: 20 MEQ, UNK
     Route: 065
  12. OXYCODONE [Concomitant]
     Indication: PRODUCT USED FOR UNKNOWN INDICATION
     Dosage: 5 MG, UNK
     Route: 048
  13. OXYCONTIN [Concomitant]
     Indication: PRODUCT USED FOR UNKNOWN INDICATION
     Dosage: 20 MG, BID
     Route: 048
  14. PHENAZOPYRIDINE [Concomitant]
     Indication: PRODUCT USED FOR UNKNOWN INDICATION
     Dosage: 200 MG, UNK
     Route: 048
  15. PROCHLORPERAZINE MALEATE [Concomitant]
     Indication: PRODUCT USED FOR UNKNOWN INDICATION
     Dosage: 10 MG, UNK
     Route: 048
  16. PROTONIX                           /01263201/ [Concomitant]
     Indication: PRODUCT USED FOR UNKNOWN INDICATION
     Dosage: 40 MG, UNK
     Route: 048
  17. SENNA                              /00142201/ [Concomitant]
     Indication: PRODUCT USED FOR UNKNOWN INDICATION
     Dosage: 15 MG, UNK
     Route: 048

REACTIONS (12)
  - Non-Hodgkin^s lymphoma [Fatal]
  - Pancytopenia [Unknown]
  - Groin pain [Unknown]
  - Weight decreased [Unknown]
  - Fall [Unknown]
  - Nausea [Unknown]
  - Oedema peripheral [Unknown]
  - Abdominal pain [Unknown]
  - Decreased appetite [Unknown]
  - Asthenia [Unknown]
  - Disease progression [Unknown]
  - Off label use [Unknown]
